FAERS Safety Report 8987204 (Version 3)
Quarter: 2013Q2

REPORT INFORMATION
  Report Type: Spontaneous
  Country: US (occurrence: US)
  Receive Date: 20121227
  Receipt Date: 20130605
  Transmission Date: 20140414
  Serious: Yes (Hospitalization, Other)
  Sender: FDA-Public Use
  Company Number: US-AMGEN-USASP2012082972

PATIENT
  Age: 22 Year
  Sex: Female
  Weight: 67.57 kg

DRUGS (12)
  1. ENBREL [Suspect]
     Indication: RHEUMATOID ARTHRITIS
     Dosage: 50 MG, QWK
     Route: 058
     Dates: start: 20040120
  2. METHOTREXATE [Concomitant]
     Dosage: 2.5 MG, UNK, 5 TABLETS ONCE A WEEK
  3. MOBIC [Concomitant]
     Dosage: 15 MG, QD
  4. FERROUS SULPHATE                   /00023503/ [Concomitant]
     Dosage: 325 UNK, QD
  5. FOLIC ACID [Concomitant]
     Dosage: 1 MG, QD
  6. PREDNISONE [Concomitant]
     Dosage: 5 MG, UNK, 1-2 PRN
  7. IRON [Concomitant]
     Dosage: 325 MG,QD
  8. HYDROXYCHLOROQUINE [Concomitant]
     Dosage: UNK
  9. AMBER                              /00160501/ [Concomitant]
     Dosage: UNK
  10. TRIAMCINOLONE [Concomitant]
     Dosage: 20 MG, UNK,GIVEN ON RIGHT KNEE
  11. AMARYL [Concomitant]
     Dosage: UNK
  12. SOLUMEDROL [Concomitant]
     Dosage: UNK

REACTIONS (13)
  - Hypoxia [Recovered/Resolved]
  - Asthma [Recovered/Resolved]
  - Pneumonia [Recovered/Resolved]
  - Tachycardia [Recovered/Resolved]
  - Synovitis [Unknown]
  - Joint swelling [Unknown]
  - Elbow deformity [Unknown]
  - Hand deformity [Unknown]
  - Arthralgia [Unknown]
  - Lower extremity mass [Unknown]
  - Cell-mediated immune deficiency [Unknown]
  - Arthritis [Recovered/Resolved]
  - Leukocytosis [Unknown]
